FAERS Safety Report 7576107-7 (Version None)
Quarter: 2011Q2

REPORT INFORMATION
  Report Type: 
  Country: None (occurrence: None)
  Receive Date: 20110623
  Receipt Date: 20110623
  Transmission Date: 20111010
  Serious: Yes (Disabling, Other)
  Sender: FDA-Public Use
  Company Number: None

PATIENT
  Age: 63 Year
  Sex: Female
  Weight: 64.8644 kg

DRUGS (1)
  1. FLUOROMETHOLONE [Suspect]
     Indication: CHEMICAL INJURY
     Dosage: 0.1 PERCENT 4X PER DAY
     Dates: start: 20101004

REACTIONS (1)
  - SKIN DISORDER [None]
